FAERS Safety Report 21396796 (Version 1)
Quarter: 2022Q3

REPORT INFORMATION
  Report Type: Spontaneous
  Country: US (occurrence: None)
  Receive Date: 20220930
  Receipt Date: 20220930
  Transmission Date: 20221027
  Serious: Yes (Other)
  Sender: FDA-Public Use
  Company Number: None

PATIENT
  Age: 35 Year
  Sex: Male

DRUGS (1)
  1. DORZOLAMIDE HYDROCHLORIDE AND TIMOLOL MALEATE [Suspect]
     Active Substance: DORZOLAMIDE HYDROCHLORIDE\TIMOLOL MALEATE
     Indication: Hypersensitivity
     Dosage: OTHER QUANTITY : 1 DROP(S);?OTHER FREQUENCY : ONCE THAT I^M AWAR;?
     Route: 047
     Dates: start: 20210326, end: 20210326

REACTIONS (4)
  - Wrong product administered [None]
  - Victim of crime [None]
  - Instillation site complication [None]
  - Eye disorder [None]

NARRATIVE: CASE EVENT DATE: 20210328
